FAERS Safety Report 9254047 (Version 1)
Quarter: 2013Q1

REPORT INFORMATION
  Report Type: Spontaneous
  Country: US (occurrence: None)
  Receive Date: 20121211
  Receipt Date: 20121211
  Transmission Date: 20140127
  Serious: Yes (Other)
  Sender: FDA-Public Use
  Company Number: 111USA02818

PATIENT
  Age: 42 Year
  Sex: Female

DRUGS (2)
  1. ISENTRESS [Suspect]
     Indication: HIV INFECTION
     Route: 048
     Dates: start: 20110928, end: 20111027
  2. TRUVADA [Suspect]
     Indication: HIV INFECTION
     Dates: start: 20110928, end: 20111027

REACTIONS (3)
  - Rash generalised [None]
  - Pyrexia [None]
  - Pain [None]
